FAERS Safety Report 25209874 (Version 2)
Quarter: 2025Q2

REPORT INFORMATION
  Report Type: Spontaneous
  Country: US (occurrence: US)
  Receive Date: 20250417
  Receipt Date: 20250422
  Transmission Date: 20250717
  Serious: No
  Sender: MYLAN
  Company Number: US-MYLANLABS-2025M1029957

PATIENT
  Sex: Female

DRUGS (1)
  1. PRASUGREL [Suspect]
     Active Substance: PRASUGREL
     Indication: Product used for unknown indication

REACTIONS (2)
  - Illness [Unknown]
  - Recalled product administered [Unknown]
